FAERS Safety Report 11839760 (Version 1)
Quarter: 2015Q4

REPORT INFORMATION
  Report Type: Spontaneous
  Country: US (occurrence: None)
  Receive Date: 20151215
  Receipt Date: 20151215
  Transmission Date: 20160305
  Serious: No
  Sender: FDA-Public Use
  Company Number: None

PATIENT
  Age: 67 Year
  Sex: Female

DRUGS (1)
  1. HUMIRA [Suspect]
     Active Substance: ADALIMUMAB
     Indication: ARTHRITIS
     Dosage: 40MG, EVERY 14 DAYS, SUBCUTANEOUSLY
     Route: 058
     Dates: start: 20150908

REACTIONS (2)
  - Vomiting [None]
  - Malaise [None]

NARRATIVE: CASE EVENT DATE: 20151129
